FAERS Safety Report 4822059-X (Version None)
Quarter: 2005Q4

REPORT INFORMATION
  Report Type: 
  Country: None (occurrence: None)
  Receive Date: 20051102
  Receipt Date: 20051017
  Transmission Date: 20060501
  Serious: Yes (Other)
  Sender: FDA-Public Use
  Company Number: GBS051018788

PATIENT
  Age: 11 Year
  Sex: Female
  Weight: 62 kg

DRUGS (1)
  1. STRATTERA [Suspect]
     Indication: ATTENTION DEFICIT/HYPERACTIVITY DISORDER
     Dosage: 40 MG
     Dates: start: 20050831, end: 20050915

REACTIONS (3)
  - AGGRESSION [None]
  - ANGER [None]
  - DEPRESSION [None]
